FAERS Safety Report 5729580-0 (Version None)
Quarter: 2008Q2

REPORT INFORMATION
  Report Type: 
  Country: None (occurrence: None)
  Receive Date: 20080501
  Receipt Date: 20080422
  Transmission Date: 20081010
  Serious: Yes (Hospitalization)
  Sender: FDA-Public Use
  Company Number: PL-JNJFOC-20070900426

PATIENT
  Age: 70 Year
  Sex: Female

DRUGS (1)
  1. DECITABINE (DECITABINE) LYOPHILIZED POWDER [Suspect]
     Indication: ACUTE MYELOID LEUKAEMIA
     Dosage: 32.4 MG, INTRAVENOUS
     Route: 042
     Dates: start: 20070703, end: 20070707

REACTIONS (11)
  - BACTERAEMIA [None]
  - COLITIS [None]
  - ENTEROBACTER INFECTION [None]
  - ENTEROCOCCAL INFECTION [None]
  - ESCHERICHIA INFECTION [None]
  - FEBRILE NEUTROPENIA [None]
  - OSTEOPOROSIS [None]
  - REFUSAL OF TREATMENT BY PATIENT [None]
  - SPINAL COMPRESSION FRACTURE [None]
  - SPONDYLITIS [None]
  - URINARY TRACT INFECTION [None]
